FAERS Safety Report 7912445-3 (Version None)
Quarter: 2011Q4

REPORT INFORMATION
  Report Type: 
  Country: None (occurrence: None)
  Receive Date: 20111114
  Receipt Date: 20111111
  Transmission Date: 20120403
  Serious: Yes (Other)
  Sender: FDA-Public Use
  Company Number: US-AMGEN-USASP2011059292

PATIENT
  Sex: Male

DRUGS (1)
  1. NPLATE [Suspect]
     Indication: THROMBOCYTOPENIC PURPURA
     Dates: start: 20110601, end: 20111020

REACTIONS (4)
  - WALKING AID USER [None]
  - ABASIA [None]
  - TOXIC NEUROPATHY [None]
  - NEUROPATHY PERIPHERAL [None]
